FAERS Safety Report 9935894 (Version 1)
Quarter: 2014Q1

REPORT INFORMATION
  Report Type: Report from Study
  Country: AR (occurrence: AR)
  Receive Date: 20140228
  Receipt Date: 20140228
  Transmission Date: 20141002
  Serious: Yes (Other)
  Sender: FDA-Public Use
  Company Number: PHHY2014AR025026

PATIENT
  Sex: Female

DRUGS (1)
  1. DIOVAN D [Suspect]
     Indication: HYPERTENSION
     Dosage: 1 DF (320/12.5 MG) DAILY
     Route: 048

REACTIONS (3)
  - Haemorrhage [Unknown]
  - Anaemia [Unknown]
  - Blood uric acid increased [Recovered/Resolved]
